FAERS Safety Report 23066626 (Version 1)
Quarter: 2023Q4

REPORT INFORMATION
  Report Type: Spontaneous
  Country: US (occurrence: None)
  Receive Date: 20231016
  Receipt Date: 20231016
  Transmission Date: 20240110
  Serious: No
  Sender: FDA-Public Use
  Company Number: 2023A231985

PATIENT
  Age: 53 Year
  Sex: Female

DRUGS (2)
  1. SAPHNELO [Suspect]
     Active Substance: ANIFROLUMAB-FNIA
     Indication: Systemic lupus erythematosus
     Route: 041
     Dates: start: 20231006, end: 20231006
  2. SAPHNLEO [Concomitant]
     Indication: Systemic lupus erythematosus
     Route: 041

REACTIONS (2)
  - Infusion site pain [Recovered/Resolved]
  - Infusion site haemorrhage [Unknown]

NARRATIVE: CASE EVENT DATE: 20231010
